FAERS Safety Report 4455904-0 (Version None)
Quarter: 2004Q3

REPORT INFORMATION
  Report Type: 
  Country: None (occurrence: None)
  Receive Date: 20040920
  Receipt Date: 20040910
  Transmission Date: 20050211
  Serious: Yes (Death)
  Sender: FDA-Public Use
  Company Number: 2004-DE-04662GD

PATIENT
  Age: 79 Year
  Sex: Female

DRUGS (11)
  1. METHOTREXATE [Suspect]
     Indication: RHEUMATOID ARTHRITIS
  2. LEFLUNOMIDE [Suspect]
     Indication: RHEUMATOID ARTHRITIS
  3. CAPTOPRIL [Concomitant]
  4. CELECOXIB (CELECOXIB) (IPRATROPIUM-BR) [Concomitant]
  5. FUROSEMIDE [Concomitant]
  6. PREDNISOLONE [Concomitant]
  7. FOLIC ACID [Concomitant]
  8. DOTHIEPIN HYDROCHLORIDE [Concomitant]
  9. OMEPRAZOLE [Concomitant]
  10. ESTRADIOL [Concomitant]
  11. CALCITRIOL [Concomitant]

REACTIONS (2)
  - ASPIRATION BONE MARROW ABNORMAL [None]
  - PANCYTOPENIA [None]
